FAERS Safety Report 6582167-2 (Version None)
Quarter: 2010Q1

REPORT INFORMATION
  Report Type: 
  Country: None (occurrence: None)
  Receive Date: 20100216
  Receipt Date: 20090806
  Transmission Date: 20100710
  Serious: Yes (Hospitalization)
  Sender: FDA-Public Use
  Company Number: PL-JNJFOC-20090802196

PATIENT
  Age: 19 Year
  Sex: Male

DRUGS (1)
  1. TOPIRAMATE [Suspect]
     Indication: SUICIDE ATTEMPT
     Dosage: 750 MG (10.7 MG/KG)
     Route: 048

REACTIONS (1)
  - INTENTIONAL OVERDOSE [None]
